FAERS Safety Report 16180387 (Version 1)
Quarter: 2019Q2

REPORT INFORMATION
  Report Type: Spontaneous
  Country: DE (occurrence: DE)
  Receive Date: 20190410
  Receipt Date: 20190410
  Transmission Date: 20190711
  Serious: Yes (Hospitalization, Other)
  Sender: FDA-Public Use
  Company Number: DE-PFIZER INC-2019147794

PATIENT
  Age: 76 Year
  Sex: Male

DRUGS (4)
  1. TELMISARTAN HEUMANN [Interacting]
     Active Substance: TELMISARTAN
     Dosage: UNK
  2. AMLODIPINE BESILATE [Suspect]
     Active Substance: AMLODIPINE BESYLATE
     Dosage: UNK
  3. METOPROLOL. [Interacting]
     Active Substance: METOPROLOL
     Dosage: UNK
  4. METFORMIN [Concomitant]
     Active Substance: METFORMIN HYDROCHLORIDE
     Indication: DIABETES MELLITUS
     Dosage: UNK

REACTIONS (5)
  - Nausea [Unknown]
  - Myalgia [Unknown]
  - Muscle spasms [Unknown]
  - Loss of consciousness [Unknown]
  - Drug interaction [Unknown]

NARRATIVE: CASE EVENT DATE: 20180318
